FAERS Safety Report 25800303 (Version 1)
Quarter: 2025Q3

REPORT INFORMATION
  Report Type: Spontaneous
  Country: CA (occurrence: CA)
  Receive Date: 20250915
  Receipt Date: 20250915
  Transmission Date: 20251021
  Serious: Yes (Other)
  Sender: JOHNSON AND JOHNSON
  Company Number: CA-JNJFOC-20250915732

PATIENT
  Age: 63 Year
  Sex: Male

DRUGS (2)
  1. USTEKINUMAB [Suspect]
     Active Substance: USTEKINUMAB
     Indication: Colitis ulcerative
     Route: 040
  2. USTEKINUMAB [Suspect]
     Active Substance: USTEKINUMAB
     Route: 040

REACTIONS (8)
  - Abdominal pain upper [Unknown]
  - Ankylosing spondylitis [Unknown]
  - Back pain [Unknown]
  - Erythema [Unknown]
  - Ill-defined disorder [Unknown]
  - Pain [Unknown]
  - Pain in extremity [Unknown]
  - Intentional product use issue [Unknown]
